FAERS Safety Report 8196608-0 (Version None)
Quarter: 2012Q1

REPORT INFORMATION
  Report Type: 
  Country: None (occurrence: None)
  Receive Date: 20120307
  Receipt Date: 20120223
  Transmission Date: 20120608
  Serious: Yes (Other)
  Sender: FDA-Public Use
  Company Number: 12-133

PATIENT
  Age: 14 Year
  Sex: Male
  Weight: 68 kg

DRUGS (1)
  1. ALEVE [Suspect]
     Indication: INTENTIONAL SELF-INJURY
     Dosage: 10-15 DF, ONCE, ORAL
     Route: 048
     Dates: start: 20120221, end: 20120221

REACTIONS (2)
  - INTENTIONAL SELF-INJURY [None]
  - INCORRECT DOSE ADMINISTERED [None]
